FAERS Safety Report 15278781 (Version 1)
Quarter: 2018Q3

REPORT INFORMATION
  Report Type: Spontaneous
  Country: DE (occurrence: DE)
  Receive Date: 20180815
  Receipt Date: 20180815
  Transmission Date: 20181010
  Serious: Yes (Other)
  Sender: FDA-Public Use
  Company Number: DE-TEVA-2018-DE-940492

PATIENT
  Sex: Male

DRUGS (2)
  1. MORPHINE SULFATE PROLONGED RELEASE [Suspect]
     Active Substance: MORPHINE SULFATE
     Indication: PAIN
     Route: 065
  2. MORPHINE SULFATE. [Suspect]
     Active Substance: MORPHINE SULFATE
     Indication: PAIN
     Dosage: 40 MILLIGRAM DAILY;
     Route: 065

REACTIONS (2)
  - Dysstasia [Unknown]
  - Walking disability [Unknown]
